FAERS Safety Report 5060106-3 (Version None)
Quarter: 2006Q3

REPORT INFORMATION
  Report Type: 
  Country: None (occurrence: None)
  Receive Date: 20060719
  Receipt Date: 20060712
  Transmission Date: 20061208
  Serious: Yes (Other)
  Sender: FDA-Public Use
  Company Number: A-CH2006-12523

PATIENT
  Age: 69 Year
  Sex: Female
  Weight: 44 kg

DRUGS (10)
  1. TRACLEER [Suspect]
     Indication: PULMONARY HYPERTENSION
     Dosage: 125 MG, BID; ORAL; 62.5 MG, BID; ORAL
     Route: 048
     Dates: start: 20050829, end: 20051009
  2. TRACLEER [Suspect]
     Indication: PULMONARY HYPERTENSION
     Dosage: 125 MG, BID; ORAL; 62.5 MG, BID; ORAL
     Route: 048
     Dates: start: 20051010, end: 20060612
  3. REMODULIN [Concomitant]
  4. RYTMONORM              (PROPAFENONE HYDROCHLORIDE) [Concomitant]
  5. CITALOPRAM HYDROBROMIDE [Concomitant]
  6. BUMETANIDE [Concomitant]
  7. XANAX [Concomitant]
  8. OMEPRAZOLE [Concomitant]
  9. KALIUM DURETTES (POTASSIUM CHLORIDE) [Concomitant]
  10. MOTILIUM [Concomitant]

REACTIONS (4)
  - ALANINE AMINOTRANSFERASE INCREASED [None]
  - ASPARTATE AMINOTRANSFERASE INCREASED [None]
  - BLOOD ALKALINE PHOSPHATASE INCREASED [None]
  - BLOOD BILIRUBIN INCREASED [None]
